FAERS Safety Report 16006982 (Version 5)
Quarter: 2019Q2

REPORT INFORMATION
  Report Type: Spontaneous
  Country: BR (occurrence: BR)
  Receive Date: 20190226
  Receipt Date: 20190501
  Transmission Date: 20190711
  Serious: Yes (Other)
  Sender: FDA-Public Use
  Company Number: BR-ALLERGAN-1906883US

PATIENT
  Sex: Female
  Weight: 60 kg

DRUGS (4)
  1. EZETIMIBE. [Concomitant]
     Active Substance: EZETIMIBE
     Indication: BLOOD CHOLESTEROL
     Dosage: 1 DF, QD
     Route: 048
     Dates: start: 2017
  2. MIOCALVEN [Concomitant]
     Indication: OSTEOPOROSIS
     Dosage: 500 MG, QD
     Route: 048
     Dates: start: 2006
  3. LIVIAL [Concomitant]
     Active Substance: TIBOLONE
     Indication: HORMONE REPLACEMENT THERAPY
     Dosage: 1 DF, QD
     Route: 048
     Dates: start: 2006, end: 20181226
  4. RISEDRONATE SODIUM - BP [Suspect]
     Active Substance: RISEDRONATE SODIUM
     Indication: OSTEOPOROSIS
     Dosage: 150 MG, Q MONTH
     Route: 048
     Dates: start: 2006, end: 20181226

REACTIONS (6)
  - Bone loss [Unknown]
  - Osteopenia [Unknown]
  - Root canal infection [Unknown]
  - Osteomyelitis [Unknown]
  - Tooth fracture [Unknown]
  - Tooth extraction [Unknown]

NARRATIVE: CASE EVENT DATE: 2006
